FAERS Safety Report 5660815-9 (Version None)
Quarter: 2008Q1

REPORT INFORMATION
  Report Type: 
  Country: None (occurrence: None)
  Receive Date: 20080311
  Receipt Date: 20080225
  Transmission Date: 20080703
  Serious: Yes (Other)
  Sender: FDA-Public Use
  Company Number: CA-BAYER-200715065NA

PATIENT
  Age: 56 Year
  Sex: Female
  Weight: 86 kg

DRUGS (6)
  1. AVELOX [Suspect]
     Indication: DRUG USE FOR UNKNOWN INDICATION
     Dosage: TOTAL DAILY DOSE: 400 MG  UNIT DOSE: 400 MG
     Route: 048
     Dates: start: 20070711, end: 20070715
  2. ACTONEL [Concomitant]
  3. IMURAN [Concomitant]
     Route: 048
  4. PREDNISONE TAB [Concomitant]
     Route: 048
  5. SEPTRA DS [Concomitant]
  6. ZANTAC [Concomitant]
     Dosage: TOTAL DAILY DOSE: 300 MG
     Route: 048

REACTIONS (1)
  - JAUNDICE CHOLESTATIC [None]
